FAERS Safety Report 8376327-8 (Version None)
Quarter: 2012Q2

REPORT INFORMATION
  Report Type: 
  Country: None (occurrence: None)
  Receive Date: 20120518
  Receipt Date: 20120508
  Transmission Date: 20120825
  Serious: Yes (Death, Other)
  Sender: FDA-Public Use
  Company Number: 7131205

PATIENT
  Age: 60 Year
  Sex: Male

DRUGS (1)
  1. CYANOKIT [Suspect]
     Indication: PRODUCT USED FOR UNKNOWN INDICATION

REACTIONS (14)
  - CARDIO-RESPIRATORY ARREST [None]
  - METABOLIC ACIDOSIS [None]
  - HEPATIC CONGESTION [None]
  - HYPOTHERMIA [None]
  - BLOOD PRESSURE DECREASED [None]
  - CEREBRAL HAEMORRHAGE [None]
  - PULMONARY HAEMORRHAGE [None]
  - RENAL VENOUS CONGESTION [None]
  - HYPERCHLORAEMIA [None]
  - HYPERNATRAEMIA [None]
  - CHROMATURIA [None]
  - BRAIN OEDEMA [None]
  - PULMONARY OEDEMA [None]
  - SKIN DISCOLOURATION [None]
